FAERS Safety Report 11791321 (Version 1)
Quarter: 2015Q4

REPORT INFORMATION
  Report Type: Spontaneous
  Country: US (occurrence: US)
  Receive Date: 20151201
  Receipt Date: 20151201
  Transmission Date: 20160305
  Serious: No
  Sender: FDA-Public Use
  Company Number: US-ELI_LILLY_AND_COMPANY-US201511009620

PATIENT
  Age: 64 Year
  Sex: Male

DRUGS (4)
  1. HUMALOG [Suspect]
     Active Substance: INSULIN LISPRO
     Indication: TYPE 2 DIABETES MELLITUS
     Dosage: UNK
     Route: 065
  2. HUMALOG [Suspect]
     Active Substance: INSULIN LISPRO
     Dosage: UNK UNK, PRN
     Route: 065
     Dates: start: 201511
  3. LANTUS [Concomitant]
     Active Substance: INSULIN GLARGINE
     Dosage: 30 U, EACH MORNING
  4. LANTUS [Concomitant]
     Active Substance: INSULIN GLARGINE
     Dosage: 40 U, EACH EVENING

REACTIONS (2)
  - Blood glucose increased [Not Recovered/Not Resolved]
  - Glycosylated haemoglobin increased [Unknown]

NARRATIVE: CASE EVENT DATE: 201511
